FAERS Safety Report 16656344 (Version 1)
Quarter: 2019Q3

REPORT INFORMATION
  Report Type: Spontaneous
  Country: US (occurrence: US)
  Receive Date: 20190801
  Receipt Date: 20190801
  Transmission Date: 20191004
  Serious: No
  Sender: FDA-Public Use
  Company Number: US-PACIRA-201800193

PATIENT
  Sex: Female

DRUGS (2)
  1. MARCAINE [Concomitant]
     Active Substance: BUPIVACAINE HYDROCHLORIDE
     Indication: PRODUCT USED FOR UNKNOWN INDICATION
     Dosage: .25 %, UNK, FREQUENCY : UNK
     Route: 065
  2. EXPAREL [Suspect]
     Active Substance: BUPIVACAINE
     Indication: PRODUCT USED FOR UNKNOWN INDICATION
     Dosage: 4 MG/KG, UNK, FREQUENCY : UNK
     Route: 065

REACTIONS (1)
  - Dysgeusia [Unknown]
